FAERS Safety Report 4677292-7 (Version None)
Quarter: 2005Q2

REPORT INFORMATION
  Report Type: 
  Country: None (occurrence: None)
  Receive Date: 20050526
  Receipt Date: 20050526
  Transmission Date: 20051028
  Serious: Yes (Hospitalization)
  Sender: FDA-Public Use
  Company Number: None

PATIENT
  Age: 3 Year
  Sex: Male
  Weight: 6.5772 kg

DRUGS (3)
  1. VINCRISTINE [Suspect]
     Indication: ACUTE LYMPHOCYTIC LEUKAEMIA
     Dosage: 0.9 MG IV
     Route: 042
     Dates: start: 20050419
  2. DEXAMETHASONE [Suspect]
     Indication: ACUTE LYMPHOCYTIC LEUKAEMIA
     Dosage: 1.9 MG BID PO
     Route: 048
     Dates: start: 20050419
  3. G-MP [Concomitant]

REACTIONS (6)
  - ABASIA [None]
  - DISCOMFORT [None]
  - HEADACHE [None]
  - IRRITABILITY [None]
  - PAIN IN EXTREMITY [None]
  - STOMATITIS [None]
